FAERS Safety Report 9113766 (Version 1)
Quarter: 2013Q1

REPORT INFORMATION
  Report Type: Spontaneous
  Country: US (occurrence: US)
  Receive Date: 20130129
  Receipt Date: 20130129
  Transmission Date: 20140127
  Serious: Yes (Other)
  Sender: FDA-Public Use
  Company Number: US-PFIZER INC-2013030613

PATIENT
  Age: 42 Year
  Sex: Female
  Weight: 61.68 kg

DRUGS (1)
  1. ADVIL [Suspect]
     Indication: BACK PAIN
     Dosage: TWO CAPSULE TOGETHER, ONCE A DAY
     Route: 048
     Dates: start: 20130122, end: 20130122

REACTIONS (1)
  - Hypersensitivity [Unknown]
